FAERS Safety Report 12811224 (Version 3)
Quarter: 2016Q4

REPORT INFORMATION
  Report Type: Spontaneous
  Country: JP (occurrence: JP)
  Receive Date: 20161005
  Receipt Date: 20161121
  Transmission Date: 20170207
  Serious: Yes (Other)
  Sender: FDA-Public Use
  Company Number: JP-VIFOR (INTERNATIONAL) INC.-VIT-2016-05059

PATIENT
  Sex: Male
  Weight: 69 kg

DRUGS (8)
  1. MIRCERA [Suspect]
     Active Substance: METHOXY POLYETHYLENE GLYCOL-EPOETIN BETA
     Indication: NEPHROGENIC ANAEMIA
     Route: 042
     Dates: start: 20160613
  2. LANSOPRAZOLE. [Concomitant]
     Active Substance: LANSOPRAZOLE
     Route: 048
  3. NEORAL [Concomitant]
     Active Substance: CYCLOSPORINE
     Indication: PSORIASIS
     Route: 048
  4. BAYASPIRIN [Concomitant]
     Active Substance: ASPIRIN
     Indication: PERIPHERAL ISCHAEMIA
     Route: 048
  5. CALCIUM CARBONATE. [Concomitant]
     Active Substance: CALCIUM CARBONATE
     Indication: DIABETIC NEPHROPATHY
     Route: 048
  6. BERAPROST SODIUM [Concomitant]
     Active Substance: BERAPROST SODIUM
     Indication: PERIPHERAL ISCHAEMIA
     Route: 048
  7. GLACTIV [Concomitant]
     Active Substance: SITAGLIPTIN
     Indication: DIABETIC NEPHROPATHY
     Route: 048
  8. SARPOGRELATE HYDROCHLORIDE [Concomitant]
     Active Substance: SARPOGRELATE
     Indication: PERIPHERAL ISCHAEMIA
     Route: 048

REACTIONS (4)
  - Bone marrow failure [Unknown]
  - Carnitine deficiency [Recovering/Resolving]
  - Anaemia [Not Recovered/Not Resolved]
  - Folate deficiency [Recovering/Resolving]

NARRATIVE: CASE EVENT DATE: 201607
